APPROVED DRUG PRODUCT: VANCOMYCIN HYDROCHLORIDE
Active Ingredient: VANCOMYCIN HYDROCHLORIDE
Strength: EQ 1.25GM BASE/VIAL
Dosage Form/Route: POWDER;INTRAVENOUS
Application: N209481 | Product #003 | TE Code: AP
Applicant: MYLAN LABORATORIES LTD
Approved: Jul 10, 2018 | RLD: Yes | RS: Yes | Type: RX